FAERS Safety Report 9562071 (Version 1)
Quarter: 2013Q3

REPORT INFORMATION
  Report Type: Report from Study
  Country: DE (occurrence: DE)
  Receive Date: 20130927
  Receipt Date: 20130927
  Transmission Date: 20140515
  Serious: Yes (Other)
  Sender: FDA-Public Use
  Company Number: DE-SANOFI-AVENTIS-2013SA093604

PATIENT
  Age: 74 Year
  Sex: Female
  Weight: 90 kg

DRUGS (7)
  1. MULTAQ [Suspect]
     Indication: ATRIAL FIBRILLATION
     Route: 048
     Dates: start: 20120607, end: 201211
  2. BETA BLOCKING AGENTS [Concomitant]
     Dates: start: 201101
  3. VIT K ANTAGONISTS [Concomitant]
     Dates: start: 201205
  4. ENALAPRIL [Concomitant]
  5. SPIRONOLACTONE [Concomitant]
  6. BENALAPRIL [Concomitant]
     Dosage: DOSE UNIT: 10/25
  7. METOPROLOL SUCCINATE [Concomitant]

REACTIONS (1)
  - Atrial fibrillation [Unknown]
